FAERS Safety Report 11893710 (Version 2)
Quarter: 2016Q2

REPORT INFORMATION
  Report Type: Spontaneous
  Country: US (occurrence: US)
  Receive Date: 20160106
  Receipt Date: 20160405
  Transmission Date: 20160815
  Serious: No
  Sender: FDA-Public Use
  Company Number: US-ACTELION PHARMACEUTICALS US, INC.-A-US2015-129187

PATIENT
  Age: 80 Year
  Sex: Female

DRUGS (1)
  1. VALCHLOR [Suspect]
     Active Substance: MECHLORETHAMINE
     Indication: MYCOSIS FUNGOIDES
     Dosage: UNK, APPLY DAILY TO AFFECTED AREAS
     Route: 061
     Dates: start: 20150922

REACTIONS (3)
  - Dyspnoea [Unknown]
  - Abdominal pain upper [Recovered/Resolved]
  - Application site erythema [Unknown]
